FAERS Safety Report 8737676 (Version 2)
Quarter: 2013Q4

REPORT INFORMATION
  Report Type: Spontaneous
  Country: US (occurrence: US)
  Receive Date: 20120822
  Receipt Date: 20131101
  Transmission Date: 20140711
  Serious: No
  Sender: FDA-Public Use
  Company Number: US-009507513-1206USA03507

PATIENT
  Sex: Female

DRUGS (4)
  1. COSOPT [Suspect]
     Indication: GLAUCOMA
     Dosage: 2 GTT, QD
     Route: 047
     Dates: start: 2001
  2. METFORMIN [Concomitant]
  3. PRED FORTE [Concomitant]
  4. SYSTANE [Concomitant]

REACTIONS (3)
  - Glaucoma [Unknown]
  - Glaucoma [Unknown]
  - Eye irritation [Not Recovered/Not Resolved]
